FAERS Safety Report 8553147-2 (Version None)
Quarter: 2012Q3

REPORT INFORMATION
  Report Type: 
  Country: None (occurrence: None)
  Receive Date: 20120731
  Receipt Date: 20120726
  Transmission Date: 20120928
  Serious: No
  Sender: FDA-Public Use
  Company Number: CA-JNJFOC-20120300588

PATIENT
  Sex: Female
  Weight: 67 kg

DRUGS (1)
  1. REMICADE [Suspect]
     Indication: CROHN'S DISEASE
     Route: 042
     Dates: start: 20090930

REACTIONS (6)
  - TOOTH ABSCESS [None]
  - PYREXIA [None]
  - ARTHRALGIA [None]
  - LYMPHADENOPATHY [None]
  - INFLUENZA [None]
  - HERPES ZOSTER [None]
